FAERS Safety Report 4897019-3 (Version None)
Quarter: 2006Q1

REPORT INFORMATION
  Report Type: 
  Country: None (occurrence: None)
  Receive Date: 20060127
  Receipt Date: 20060113
  Transmission Date: 20060701
  Serious: Yes (Death, Hospitalization)
  Sender: FDA-Public Use
  Company Number: SI200601000353

PATIENT
  Sex: Female

DRUGS (3)
  1. ZYPREXA [Suspect]
     Dosage: 5 MG, 2/D, ORAL
     Route: 048
  2. MIRTAZAPINE [Concomitant]
  3. BENZODIAZEPINE DERIVATIVES [Concomitant]

REACTIONS (6)
  - BEDRIDDEN [None]
  - EXTRAPYRAMIDAL DISORDER [None]
  - INFECTION [None]
  - NEUROLEPTIC MALIGNANT SYNDROME [None]
  - PARESIS [None]
  - PULMONARY EMBOLISM [None]
